FAERS Safety Report 22772379 (Version 2)
Quarter: 2023Q4

REPORT INFORMATION
  Report Type: Report from Study
  Country: US (occurrence: US)
  Receive Date: 20230801
  Receipt Date: 20231013
  Transmission Date: 20240110
  Serious: Yes (Hospitalization)
  Sender: FDA-Public Use
  Company Number: US-002147023-NVSC2023US166857

PATIENT
  Age: 64 Year
  Sex: Female

DRUGS (1)
  1. ENTRESTO [Suspect]
     Active Substance: SACUBITRIL\VALSARTAN
     Indication: Cardiac failure
     Dosage: 1 DOSAGE FORM, BID
     Route: 048
     Dates: start: 202107

REACTIONS (8)
  - Osteoarthritis [Recovered/Resolved]
  - Back pain [Unknown]
  - Arthralgia [Unknown]
  - Ventricular tachycardia [Recovered/Resolved]
  - Disease recurrence [Recovered/Resolved]
  - Head discomfort [Recovered/Resolved]
  - Cough [Unknown]
  - Hypersensitivity [Unknown]

NARRATIVE: CASE EVENT DATE: 20220401
